FAERS Safety Report 7800977-8 (Version None)
Quarter: 2011Q4

REPORT INFORMATION
  Report Type: 
  Country: None (occurrence: None)
  Receive Date: 20111007
  Receipt Date: 20110929
  Transmission Date: 20120403
  Serious: Yes (Hospitalization)
  Sender: FDA-Public Use
  Company Number: GB-BIOGENIDEC-2010BI006121

PATIENT
  Age: 26 Year
  Sex: Female

DRUGS (3)
  1. TYSABRI [Suspect]
     Indication: RELAPSING-REMITTING MULTIPLE SCLEROSIS
     Dates: start: 20090827
  2. SERTRALINE HYDROCHLORIDE [Concomitant]
  3. NORDETTE-28 [Concomitant]
     Indication: CONTRACEPTION

REACTIONS (3)
  - SUPERIOR SAGITTAL SINUS THROMBOSIS [None]
  - RESPIRATORY TRACT INFECTION [None]
  - CEREBRAL HAEMORRHAGE [None]
